FAERS Safety Report 8008174-0 (Version None)
Quarter: 2011Q4

REPORT INFORMATION
  Report Type: 
  Country: None (occurrence: None)
  Receive Date: 20111227
  Receipt Date: 20111221
  Transmission Date: 20120403
  Serious: Yes (Hospitalization)
  Sender: FDA-Public Use
  Company Number: US-B.I. PHARMACEUTICALS,INC./RIDGEFIELD-2011-BP-24609BP

PATIENT
  Sex: Female

DRUGS (10)
  1. PRADAXA [Suspect]
     Indication: ATRIAL FIBRILLATION
     Dosage: 300 MG
     Route: 048
     Dates: start: 20110920, end: 20111011
  2. TOPROL-XL [Concomitant]
     Dosage: 50 MG
     Route: 048
  3. METOPROLOL SUCCINATE [Concomitant]
  4. DIGOXIN [Concomitant]
     Dosage: 125 MCG
     Route: 048
  5. POTASSIUM CHLORIDE [Concomitant]
  6. MECLIZINE [Concomitant]
     Dosage: 75 MG
     Route: 048
  7. LASIX [Concomitant]
  8. LEVOTHYROXINE SODIUM [Concomitant]
  9. PEPCID [Concomitant]
     Dosage: 20 MG
     Route: 048
  10. THYROID TAB [Concomitant]
     Dosage: 60 MG
     Route: 048

REACTIONS (2)
  - MOUTH ULCERATION [None]
  - SKIN NECROSIS [None]
